FAERS Safety Report 10141883 (Version 2)
Quarter: 2014Q2

REPORT INFORMATION
  Report Type: Spontaneous
  Country: DE (occurrence: DE)
  Receive Date: 20140429
  Receipt Date: 20140429
  Transmission Date: 20141212
  Serious: Yes (Hospitalization)
  Sender: FDA-Public Use
  Company Number: DE-ABBVIE-14P-062-1195837-00

PATIENT
  Age: 43 Year
  Sex: Male

DRUGS (10)
  1. HUMIRA [Suspect]
     Indication: CROHN^S DISEASE
     Route: 058
     Dates: start: 201003, end: 201007
  2. HUMIRA [Suspect]
     Route: 058
     Dates: start: 201007, end: 201201
  3. HUMIRA [Suspect]
     Dosage: 80MG AND 40MG IN WEEKLY CHANGE
     Route: 058
     Dates: start: 201201, end: 201204
  4. HUMIRA [Suspect]
     Route: 058
     Dates: start: 201204
  5. PREDNISOLONE [Concomitant]
     Indication: PRODUCT USED FOR UNKNOWN INDICATION
     Dates: start: 201205
  6. PREDNISOLONE [Concomitant]
     Dates: start: 201401
  7. METHOTREXATE [Concomitant]
     Indication: PRODUCT USED FOR UNKNOWN INDICATION
     Dates: start: 201309
  8. BUDESONIDE [Concomitant]
     Indication: PRODUCT USED FOR UNKNOWN INDICATION
     Dates: start: 201111
  9. BUDESONIDE [Concomitant]
     Dates: start: 201307
  10. BUDESONIDE [Concomitant]
     Dates: start: 201403

REACTIONS (4)
  - Intestinal ulcer [Not Recovered/Not Resolved]
  - Crohn^s disease [Not Recovered/Not Resolved]
  - Off label use [Unknown]
  - Intestinal anastomosis complication [Not Recovered/Not Resolved]
